FAERS Safety Report 5359671-8 (Version None)
Quarter: 2007Q2

REPORT INFORMATION
  Report Type: 
  Country: None (occurrence: None)
  Receive Date: 20070530
  Receipt Date: 20070329
  Transmission Date: 20071010
  Serious: No
  Sender: FDA-Public Use
  Company Number: 2007PV032630

PATIENT
  Age: 42 Year
  Sex: Male
  Weight: 128.8216 kg

DRUGS (5)
  1. BYETTA [Suspect]
     Indication: DIABETES MELLITUS NON-INSULIN-DEPENDENT
     Dosage: SEE IMAGE
     Route: 058
     Dates: start: 20070201, end: 20070301
  2. BYETTA [Suspect]
     Indication: DIABETES MELLITUS NON-INSULIN-DEPENDENT
     Dosage: SEE IMAGE
     Route: 058
     Dates: start: 20070301
  3. GLUCOPHAGE [Concomitant]
  4. ACTOS [Concomitant]
  5. GLIPIZIDE [Concomitant]

REACTIONS (3)
  - DECREASED APPETITE [None]
  - NAUSEA [None]
  - WEIGHT DECREASED [None]
